FAERS Safety Report 9581316 (Version 2)
Quarter: 2013Q4

REPORT INFORMATION
  Report Type: Spontaneous
  Country: US (occurrence: US)
  Receive Date: 20131002
  Receipt Date: 20131105
  Transmission Date: 20140711
  Serious: Yes (Hospitalization)
  Sender: FDA-Public Use
  Company Number: US-GLAXOSMITHKLINE-A1040453A

PATIENT
  Age: 54 Year
  Sex: Female
  Weight: 48.6 kg

DRUGS (2)
  1. FLOLAN [Suspect]
     Indication: PULMONARY ARTERIAL HYPERTENSION
     Dosage: 80NGKM CONTINUOUS
     Route: 042
     Dates: start: 20030306
  2. REVATIO [Concomitant]

REACTIONS (4)
  - Chest pain [Recovering/Resolving]
  - Chest discomfort [Recovering/Resolving]
  - Weight decreased [Recovering/Resolving]
  - Overdose [Recovering/Resolving]
